FAERS Safety Report 4691924-9 (Version None)
Quarter: 2005Q2

REPORT INFORMATION
  Report Type: 
  Country: None (occurrence: None)
  Receive Date: 20050614
  Receipt Date: 20050614
  Transmission Date: 20051028
  Serious: Yes (Hospitalization)
  Sender: FDA-Public Use
  Company Number: None

PATIENT
  Age: 59 Year
  Sex: Male

DRUGS (1)
  1. DIGOXIN [Suspect]
     Dosage: 0.25 MG PO QD
     Route: 048

REACTIONS (2)
  - BRADYCARDIA [None]
  - THERAPEUTIC AGENT TOXICITY [None]
